FAERS Safety Report 11938954 (Version 1)
Quarter: 2016Q1

REPORT INFORMATION
  Report Type: Spontaneous
  Country: PK (occurrence: PK)
  Receive Date: 20160122
  Receipt Date: 20160122
  Transmission Date: 20160526
  Serious: Yes (Death)
  Sender: FDA-Public Use
  Company Number: PK-HORIZON-BUP-0012-2016

PATIENT
  Age: 15 Year
  Sex: Male

DRUGS (1)
  1. AMMONAPS TABLET [Suspect]
     Active Substance: SODIUM PHENYLBUTYRATE
     Indication: ARGINASE DEFICIENCY
     Dosage: 18 TABLETS QD
     Route: 048
     Dates: start: 20100125

REACTIONS (3)
  - Dizziness [Fatal]
  - Coma [Fatal]
  - Vertigo [Fatal]

NARRATIVE: CASE EVENT DATE: 2012
